FAERS Safety Report 16945943 (Version 6)
Quarter: 2020Q3

REPORT INFORMATION
  Report Type: Spontaneous
  Country: US (occurrence: US)
  Receive Date: 20191022
  Receipt Date: 20200921
  Transmission Date: 20201102
  Serious: Yes (Life-Threatening, Hospitalization, Other)
  Sender: FDA-Public Use
  Company Number: US-PFIZER INC-2019455447

PATIENT
  Age: 61 Year
  Sex: Male

DRUGS (1)
  1. LYRICA [Suspect]
     Active Substance: PREGABALIN
     Dosage: 150 MG, 2X/DAY (FOR 1 MONTH )

REACTIONS (5)
  - Pain [Not Recovered/Not Resolved]
  - Neoplasm malignant [Unknown]
  - Gait disturbance [Unknown]
  - Limb discomfort [Unknown]
  - Illness [Unknown]
